FAERS Safety Report 12535352 (Version 3)
Quarter: 2016Q3

REPORT INFORMATION
  Report Type: Report from Study
  Country: US (occurrence: US)
  Receive Date: 20160707
  Receipt Date: 20160815
  Transmission Date: 20161109
  Serious: No
  Sender: FDA-Public Use
  Company Number: US-AMGEN-USASL2016086968

PATIENT
  Age: 59 Year
  Sex: Female

DRUGS (1)
  1. ENBREL [Suspect]
     Active Substance: ETANERCEPT
     Indication: RHEUMATOID ARTHRITIS
     Dosage: UNK FOR SIX MONTHS
     Route: 065

REACTIONS (4)
  - Injection site bruising [Unknown]
  - Drug dose omission [Unknown]
  - Nervousness [Unknown]
  - Incorrect product storage [Unknown]
